FAERS Safety Report 13794812 (Version 1)
Quarter: 2017Q3

REPORT INFORMATION
  Report Type: Spontaneous
  Country: CA (occurrence: CA)
  Receive Date: 20170726
  Receipt Date: 20170726
  Transmission Date: 20171127
  Serious: Yes (Other)
  Sender: FDA-Public Use
  Company Number: CA-ACCORD-056164

PATIENT
  Age: 61 Year
  Sex: Female

DRUGS (3)
  1. FLUOROURACIL. [Suspect]
     Active Substance: FLUOROURACIL
     Indication: MALIGNANT NEOPLASM OF AMPULLA OF VATER
     Dosage: FOLFIRINOX
  2. IRINOTECAN [Suspect]
     Active Substance: IRINOTECAN
     Indication: MALIGNANT NEOPLASM OF AMPULLA OF VATER
     Dosage: FOLFIRINOX
  3. OXALIPLATIN. [Suspect]
     Active Substance: OXALIPLATIN
     Indication: MALIGNANT NEOPLASM OF AMPULLA OF VATER
     Dosage: FOLFIRINOX

REACTIONS (3)
  - Bone marrow failure [Unknown]
  - Off label use [Unknown]
  - Peripheral sensory neuropathy [Recovered/Resolved]
